FAERS Safety Report 19162589 (Version 3)
Quarter: 2021Q3

REPORT INFORMATION
  Report Type: Report from Study
  Country: CN (occurrence: CN)
  Receive Date: 20210421
  Receipt Date: 20210702
  Transmission Date: 20211014
  Serious: Yes (Hospitalization)
  Sender: FDA-Public Use
  Company Number: CN-B.I. PHARMACEUTICALS,INC./RIDGEFIELD-2020-BI-027144

PATIENT
  Age: 69 Year
  Sex: Male
  Weight: 60 kg

DRUGS (12)
  1. REPAGLINIDE. [Concomitant]
     Active Substance: REPAGLINIDE
     Indication: TYPE 2 DIABETES MELLITUS
     Dosage: 6 TABLETS
     Route: 048
     Dates: start: 20200403
  2. ESOMEPRAZOLE SODIUM. [Suspect]
     Active Substance: ESOMEPRAZOLE SODIUM
     Indication: DECREASED APPETITE
     Route: 042
     Dates: start: 20210412
  3. AFATINIB [Suspect]
     Active Substance: AFATINIB
     Indication: LUNG SQUAMOUS CELL CARCINOMA METASTATIC
     Route: 048
     Dates: start: 20200303
  4. VITAMINS NOS [Concomitant]
     Active Substance: VITAMINS
     Indication: VITAMIN SUPPLEMENTATION
     Dosage: 1 TABLET
     Route: 048
     Dates: start: 20200309
  5. SMECTITE [Suspect]
     Active Substance: MONTMORILLONITE
     Indication: DIARRHOEA
     Dosage: 1 PACK 3 TIMES DAILY
     Route: 048
     Dates: start: 20210314
  6. MEGESTROL ACETATE. [Suspect]
     Active Substance: MEGESTROL ACETATE
     Indication: DECREASED APPETITE
     Route: 048
     Dates: start: 20210326
  7. SMECTITE [Suspect]
     Active Substance: MONTMORILLONITE
     Dosage: POWDER
     Route: 048
     Dates: start: 20210412
  8. MONTMORILLONITE [Concomitant]
     Active Substance: MONTMORILLONITE
     Indication: DIARRHOEA
     Dosage: 1 PACK/TIME TIDPO
     Route: 048
     Dates: start: 20210314
  9. AFATINIB [Suspect]
     Active Substance: AFATINIB
     Route: 048
     Dates: start: 20210303
  10. MEGESTROL ACETATE. [Suspect]
     Active Substance: MEGESTROL ACETATE
     Indication: DECREASED APPETITE
     Dosage: QDPO
     Route: 048
     Dates: start: 20200326, end: 20200410
  11. SODIUM POTASSIUM AND GLUCOSE (GLUCOSE\SODIUM LACTATE\POTASSIUM CHLORIDE\SODIUM CHLORIDE) [Suspect]
     Active Substance: DEXTROSE\POTASSIUM CHLORIDE\SODIUM CHLORIDE\SODIUM LACTATE
     Indication: ELECTROLYTE SUBSTITUTION THERAPY
     Route: 042
     Dates: start: 20210412
  12. THYMOPENTINE [Suspect]
     Active Substance: THYMOPENTIN
     Indication: PROPHYLAXIS
     Route: 042
     Dates: start: 20210412

REACTIONS (3)
  - Condition aggravated [Recovered/Resolved]
  - Type 2 diabetes mellitus [Not Recovered/Not Resolved]
  - Decreased appetite [Not Recovered/Not Resolved]

NARRATIVE: CASE EVENT DATE: 20200407
